FAERS Safety Report 10335124 (Version 1)
Quarter: 2014Q3

REPORT INFORMATION
  Report Type: Spontaneous
  Country: US (occurrence: None)
  Receive Date: 20140722
  Receipt Date: 20140722
  Transmission Date: 20150326
  Serious: Yes (Hospitalization)
  Sender: FDA-Public Use
  Company Number: None

PATIENT
  Age: 53 Year
  Sex: Female
  Weight: 90.27 kg

DRUGS (1)
  1. TRAMADOL [Suspect]
     Active Substance: TRAMADOL
     Indication: MUSCULOSKELETAL PAIN
     Dosage: 1 PILL EVERY 6 HRS  AS NEEDED TAKEN BY MOUTH
     Route: 048
     Dates: start: 20140710, end: 20140714

REACTIONS (5)
  - Gait disturbance [None]
  - Hallucination [None]
  - Memory impairment [None]
  - Mental status changes [None]
  - Dysarthria [None]

NARRATIVE: CASE EVENT DATE: 20140714
